FAERS Safety Report 16153026 (Version 3)
Quarter: 2021Q4

REPORT INFORMATION
  Report Type: Report from Study
  Country: JP (occurrence: JP)
  Receive Date: 20190403
  Receipt Date: 20211208
  Transmission Date: 20220303
  Serious: Yes (Other)
  Sender: FDA-Public Use
  Company Number: PHJP2019JP003868

PATIENT
  Sex: Female

DRUGS (2)
  1. TASIGNA [Suspect]
     Active Substance: NILOTINIB
     Indication: Chronic myeloid leukaemia
     Dosage: UNK
     Route: 048
  2. GLIVEC [Suspect]
     Active Substance: IMATINIB MESYLATE
     Indication: Chronic myeloid leukaemia
     Dosage: UNK
     Route: 048

REACTIONS (6)
  - Anaphylactic reaction [Unknown]
  - Vomiting [Unknown]
  - Chronic myeloid leukaemia recurrent [Unknown]
  - Musculoskeletal pain [Unknown]
  - Weight decreased [Unknown]
  - Rash [Unknown]
